FAERS Safety Report 5342487-6 (Version None)
Quarter: 2007Q2

REPORT INFORMATION
  Report Type: 
  Country: None (occurrence: None)
  Receive Date: 20070601
  Receipt Date: 20070521
  Transmission Date: 20071010
  Serious: Yes (Other)
  Sender: FDA-Public Use
  Company Number: US-SHR-US-2007-006607

PATIENT
  Age: 43 Year
  Sex: Female
  Weight: 67 kg

DRUGS (32)
  1. MAGNEVIST [Suspect]
     Dosage: 20 ML, 1 DOSE
     Route: 042
     Dates: start: 20060228, end: 20060228
  2. MAGNEVIST [Suspect]
     Dosage: UNK, 1 DOSE
     Route: 042
     Dates: start: 20060807, end: 20060807
  3. MAGNEVIST [Suspect]
     Dosage: UNK, 1 DOSE
     Route: 042
     Dates: start: 20060815, end: 20060815
  4. MAGNEVIST [Suspect]
     Dosage: UNK, 1 DOSE
     Route: 042
     Dates: start: 20061202, end: 20061202
  5. FLUVIRIN [Concomitant]
  6. SYNTHROID [Concomitant]
  7. NEPHROCAPS [Concomitant]
  8. OXYCODONE HCL [Concomitant]
  9. PENICILLIN ^GRUNENTHAL^ [Concomitant]
  10. MS CONTIN [Concomitant]
  11. VITAMIN D [Concomitant]
  12. PHOSLO [Concomitant]
  13. RENAGEL [Concomitant]
  14. VALIUM [Concomitant]
  15. TRENTAL ^ROUSSEL^ [Concomitant]
  16. LEVOFLOXACIN [Concomitant]
  17. SYNTHROID [Concomitant]
  18. LOMOTIL [Concomitant]
  19. SARNA [Concomitant]
  20. TYLENOL [Concomitant]
  21. CIPRO [Concomitant]
  22. DOVONEX [Concomitant]
  23. CLOBETASOL PROPIONATE [Concomitant]
  24. EPOGEN [Concomitant]
  25. ZEMPLAR [Concomitant]
  26. ULTRAVIST (PHARMACY BULK) [Concomitant]
     Dosage: 100 ML, 1 DOSE
     Dates: start: 20060211, end: 20060211
  27. ULTRAVIST (PHARMACY BULK) [Concomitant]
     Dosage: 100 ML, 1 DOSE
     Dates: start: 20060804, end: 20060804
  28. ULTRAVIST (PHARMACY BULK) [Concomitant]
     Dosage: UNK, 1 DOSE
     Dates: start: 20060805, end: 20060805
  29. ULTRAVIST (PHARMACY BULK) [Concomitant]
     Dosage: UNK, 1 DOSE
     Dates: start: 20061020, end: 20061020
  30. ULTRAVIST (PHARMACY BULK) [Concomitant]
     Dosage: 100 ML, 1 DOSE
     Dates: start: 20061229, end: 20061229
  31. ULTRAVIST (PHARMACY BULK) [Concomitant]
     Dosage: 30 ML, 1 DOSE
     Dates: start: 20070102, end: 20070102
  32. CONTRAST MEDIA [Concomitant]
     Dosage: UNK, 1 DOSE
     Route: 048
     Dates: start: 20061228, end: 20061228

REACTIONS (1)
  - NEPHROGENIC FIBROSING DERMOPATHY [None]
